FAERS Safety Report 11282967 (Version 1)
Quarter: 2015Q3

REPORT INFORMATION
  Report Type: Spontaneous
  Country: JP (occurrence: JP)
  Receive Date: 20150720
  Receipt Date: 20150720
  Transmission Date: 20151125
  Serious: Yes (Hospitalization, Other)
  Sender: FDA-Public Use
  Company Number: JP-PFIZER INC-2015239649

PATIENT
  Age: 65 Year
  Sex: Female
  Weight: 45 kg

DRUGS (4)
  1. 5-FU [Concomitant]
     Active Substance: FLUOROURACIL
     Indication: PANCREATIC CARCINOMA
     Dosage: 3185 MG/BODY/D1-2 (2394.7 MG/M2/D1-2)
     Route: 042
     Dates: start: 20141028, end: 20141028
  2. IRINOTECAN HCL [Suspect]
     Active Substance: IRINOTECAN HYDROCHLORIDE
     Indication: PANCREATIC CARCINOMA
     Dosage: 195 MG/BODY (146.6 MG/M2) DAILY
     Route: 041
     Dates: start: 20141028, end: 20141028
  3. ELPLAT [Suspect]
     Active Substance: OXALIPLATIN
     Indication: PANCREATIC CARCINOMA
     Dosage: 110 MG/BODY (82.7 MG/M2) DAILY
     Route: 041
     Dates: start: 20141028, end: 20141028
  4. LEVOFOLINATE [Suspect]
     Active Substance: LEVOLEUCOVORIN CALCIUM
     Indication: PANCREATIC CARCINOMA
     Dosage: 265 MG/BODY (199.2 MG/M2) DAILY
     Route: 041
     Dates: start: 20141028, end: 20141028

REACTIONS (10)
  - Enteritis infectious [Unknown]
  - Nausea [Unknown]
  - Hyponatraemia [Unknown]
  - Neutrophil count decreased [Recovered/Resolved]
  - Haemoglobin decreased [Unknown]
  - Pyrexia [Unknown]
  - Diarrhoea [Unknown]
  - Decreased appetite [Unknown]
  - Hyperkalaemia [Unknown]
  - Fatigue [Unknown]

NARRATIVE: CASE EVENT DATE: 20141030
